FAERS Safety Report 9589196 (Version 2)
Quarter: 2013Q4

REPORT INFORMATION
  Report Type: Spontaneous
  Country: US (occurrence: US)
  Receive Date: 20131003
  Receipt Date: 20131003
  Transmission Date: 20140711
  Serious: No
  Sender: FDA-Public Use
  Company Number: US-AMGEN-USASP2012065931

PATIENT
  Age: 46 Year
  Sex: Female
  Weight: 52.15 kg

DRUGS (8)
  1. ENBREL [Suspect]
     Indication: RHEUMATOID ARTHRITIS
     Dosage: 50 MG, QWK
     Route: 058
     Dates: start: 20120215, end: 20121010
  2. ENBREL [Suspect]
     Indication: OSTEOARTHRITIS
  3. PRISTIQ [Concomitant]
     Dosage: 50 MG, UNK
  4. HYDROXYCHLOROQUINE [Concomitant]
     Dosage: 200 MG, UNK
  5. METHOTREXATE [Concomitant]
     Dosage: 2.5 MG, UNK
  6. TYLENOL                            /00020001/ [Concomitant]
     Dosage: 500 MG, UNK
  7. LAMOTRIGINE [Concomitant]
     Dosage: 200 MG, UNK
  8. MULTIVITAMINS, PLAIN [Concomitant]
     Dosage: UNK

REACTIONS (1)
  - Drug ineffective [Not Recovered/Not Resolved]
